FAERS Safety Report 5798099-3 (Version None)
Quarter: 2008Q3

REPORT INFORMATION
  Report Type: 
  Country: None (occurrence: None)
  Receive Date: 20080702
  Receipt Date: 20070514
  Transmission Date: 20090109
  Serious: Yes (Other)
  Sender: FDA-Public Use
  Company Number: US-ASTRAZENECA-2007UW11414

PATIENT
  Age: 40 Year
  Sex: Female
  Weight: 81.6 kg

DRUGS (9)
  1. ZOLADEX [Suspect]
     Indication: BREAST CANCER FEMALE
     Route: 058
  2. ZOLADEX [Concomitant]
     Route: 058
  3. TAMOXIFEN CITRATE [Concomitant]
     Route: 048
  4. PAROXITINE [Concomitant]
  5. BUPROPION HCL [Concomitant]
  6. PREVACID [Concomitant]
  7. TOPROL-XL [Concomitant]
     Route: 048
  8. LISINOPRIL [Concomitant]
  9. KLONOPIN [Concomitant]

REACTIONS (4)
  - ANXIETY [None]
  - BLOOD TRIGLYCERIDES INCREASED [None]
  - DEPRESSION [None]
  - HYPERTENSION [None]
